FAERS Safety Report 5634700-2 (Version None)
Quarter: 2008Q1

REPORT INFORMATION
  Report Type: 
  Country: None (occurrence: None)
  Receive Date: 20080222
  Receipt Date: 20080221
  Transmission Date: 20080703
  Serious: Yes (Other)
  Sender: FDA-Public Use
  Company Number: IT-BRISTOL-MYERS SQUIBB COMPANY-14080352

PATIENT
  Age: 35 Year
  Sex: Female

DRUGS (3)
  1. ABILIFY [Suspect]
  2. TAVOR [Concomitant]
  3. ENTUMINE [Concomitant]
     Dosage: 1 DOSAGE FORM= 12 DROPS+5DROPS+12 DROPS

REACTIONS (2)
  - HOMICIDE [None]
  - PSYCHOTIC DISORDER [None]
